FAERS Safety Report 6406570-6 (Version None)
Quarter: 2009Q4

REPORT INFORMATION
  Report Type: 
  Country: None (occurrence: None)
  Receive Date: 20091014
  Receipt Date: 20091007
  Transmission Date: 20100525
  Serious: Yes (Hospitalization)
  Sender: FDA-Public Use
  Company Number: 2009-GWUS-0708

PATIENT
  Age: 82 Year
  Sex: Male
  Weight: 83.9154 kg

DRUGS (2)
  1. ALDARA [Suspect]
     Indication: ACTINIC KERATOSIS
     Dosage: APPLICATION - 2XW - TOPICAL
     Route: 061
     Dates: start: 20090929, end: 20090930
  2. ZOCOR [Concomitant]

REACTIONS (5)
  - BALANCE DISORDER [None]
  - DISORIENTATION [None]
  - DIZZINESS [None]
  - TONGUE DISORDER [None]
  - VISUAL IMPAIRMENT [None]
